FAERS Safety Report 15429054 (Version 5)
Quarter: 2019Q1

REPORT INFORMATION
  Report Type: Spontaneous
  Country: US (occurrence: US)
  Receive Date: 20180926
  Receipt Date: 20190318
  Transmission Date: 20190417
  Serious: No
  Sender: FDA-Public Use
  Company Number: US-PFIZER INC-2018387168

PATIENT
  Age: 60 Year
  Sex: Female

DRUGS (3)
  1. OXYCODONE [Concomitant]
     Active Substance: OXYCODONE
     Dosage: 20 MG, 2X/DAY
  2. LYRICA [Suspect]
     Active Substance: PREGABALIN
     Dosage: 150 MG, 2X/DAY (BID)
     Dates: end: 201808
  3. LYRICA [Suspect]
     Active Substance: PREGABALIN
     Indication: NERVE INJURY
     Dosage: 150 MG, 3X/DAY (TID) (3 TIMES DAILY)
     Dates: start: 2008

REACTIONS (7)
  - Anxiety [Unknown]
  - Insomnia [Unknown]
  - Withdrawal syndrome [Unknown]
  - Chills [Unknown]
  - Screaming [Unknown]
  - Intentional product misuse [Unknown]
  - Hyperhidrosis [Unknown]

NARRATIVE: CASE EVENT DATE: 2018
